FAERS Safety Report 21651793 (Version 1)
Quarter: 2022Q4

REPORT INFORMATION
  Report Type: Spontaneous
  Country: DE (occurrence: DE)
  Receive Date: 20221128
  Receipt Date: 20221128
  Transmission Date: 20230113
  Serious: Yes (Congenital Anomaly)
  Sender: FDA-Public Use
  Company Number: None

PATIENT
  Sex: Female
  Weight: 3.03 kg

DRUGS (4)
  1. BRIVIACT [Suspect]
     Active Substance: BRIVARACETAM
     Indication: Epilepsy
     Dosage: 200 [MG/D ]/ 100-0-100 MG DAILY 2 SEPARATED DOSES
     Route: 064
     Dates: start: 20211121, end: 20220809
  2. LAMOTRIGINE [Suspect]
     Active Substance: LAMOTRIGINE
     Indication: Epilepsy
     Dosage: 400 [MG/D ]/ INITIAL 300MG DAILY, DOSAGE INCREASED TO175-0-225MG DAILY
     Route: 064
  3. FOLIC ACID [Concomitant]
     Active Substance: FOLIC ACID
     Indication: Prophylaxis of neural tube defect
     Dosage: UNK
     Route: 064
  4. BOOSTRIX [Concomitant]
     Active Substance: TETANUS TOXOID, REDUCED DIPHTHERIA TOXOID AND ACELLULAR PERTUSSIS VACCINE, ADSORBED ANTIGENS
     Indication: Immunisation
     Route: 064
     Dates: start: 20220627, end: 20220627

REACTIONS (2)
  - Gastroschisis [Recovered/Resolved with Sequelae]
  - Foetal exposure during pregnancy [Unknown]
